FAERS Safety Report 19096144 (Version 1)
Quarter: 2021Q2

REPORT INFORMATION
  Report Type: Spontaneous
  Country: US (occurrence: US)
  Receive Date: 20210405
  Receipt Date: 20210405
  Transmission Date: 20210717
  Serious: No
  Sender: FDA-Public Use
  Company Number: None

PATIENT
  Age: 47 Year
  Sex: Female

DRUGS (1)
  1. TALTZ [Suspect]
     Active Substance: IXEKIZUMAB
     Dosage: OTHER
     Route: 058
     Dates: start: 20201230

REACTIONS (6)
  - Burning sensation [None]
  - Skin erosion [None]
  - Choking sensation [None]
  - Feeling abnormal [None]
  - Skin burning sensation [None]
  - Cough [None]

NARRATIVE: CASE EVENT DATE: 20210128
